FAERS Safety Report 8322727-1 (Version None)
Quarter: 2012Q2

REPORT INFORMATION
  Report Type: 
  Country: None (occurrence: None)
  Receive Date: 20120430
  Receipt Date: 20120423
  Transmission Date: 20120825
  Serious: Yes (Other)
  Sender: FDA-Public Use
  Company Number: FR-ASTRAZENECA-2012SE26332

PATIENT
  Age: 60 Year
  Sex: Male

DRUGS (5)
  1. STATINS [Concomitant]
     Indication: HYPERCHOLESTEROLAEMIA
     Dosage: DAILY
     Dates: start: 20020101
  2. VITAMIN B9 [Concomitant]
     Route: 048
  3. VANDETANIB [Suspect]
     Indication: NON-SMALL CELL LUNG CANCER
     Route: 048
  4. VITAMIN B-12 [Concomitant]
     Route: 048
  5. PEMETREXED [Concomitant]
     Route: 042

REACTIONS (2)
  - DRUG HYPERSENSITIVITY [None]
  - INTERSTITIAL LUNG DISEASE [None]
